FAERS Safety Report 6835999-7 (Version None)
Quarter: 2010Q3

REPORT INFORMATION
  Report Type: 
  Country: None (occurrence: None)
  Receive Date: 20100713
  Receipt Date: 20100707
  Transmission Date: 20110219
  Serious: Yes (Hospitalization)
  Sender: FDA-Public Use
  Company Number: A0869586A

PATIENT
  Age: 53 Year
  Sex: Male

DRUGS (1)
  1. AVANDARYL [Suspect]
     Dosage: 1TAB TWICE PER DAY
     Dates: start: 20040401, end: 20061001

REACTIONS (1)
  - CEREBROVASCULAR ACCIDENT [None]
